FAERS Safety Report 12528422 (Version 1)
Quarter: 2016Q3

REPORT INFORMATION
  Report Type: Spontaneous
  Country: MX (occurrence: MX)
  Receive Date: 20160705
  Receipt Date: 20160705
  Transmission Date: 20161109
  Serious: Yes (Other)
  Sender: FDA-Public Use
  Company Number: MX-SA-2016SA122145

PATIENT
  Age: 69 Year
  Sex: Male
  Weight: 168 kg

DRUGS (2)
  1. AVALIDE [Suspect]
     Active Substance: HYDROCHLOROTHIAZIDE\IRBESARTAN
     Indication: HYPERTENSION
     Dosage: IRBESARTAN +HYDROCHLOROTHIAZIDE) (300 MG + 12.5 MG; TABLETS)
     Route: 048
     Dates: start: 2011, end: 201509
  2. AVALIDE [Suspect]
     Active Substance: HYDROCHLOROTHIAZIDE\IRBESARTAN
     Indication: HYPERTENSION
     Dosage: IRBESARTAN +HYDROCHLOROTHIAZIDE) (150 MG + 12.5 MG; TABLETS)
     Route: 048
     Dates: start: 201509

REACTIONS (2)
  - Neck pain [Recovered/Resolved]
  - Ischaemic stroke [Recovered/Resolved]

NARRATIVE: CASE EVENT DATE: 201509
